FAERS Safety Report 8575777-4 (Version None)
Quarter: 2012Q3

REPORT INFORMATION
  Report Type: 
  Country: None (occurrence: None)
  Receive Date: 20120807
  Receipt Date: 20111201
  Transmission Date: 20120928
  Serious: Yes (Death, Hospitalization, Other)
  Sender: FDA-Public Use
  Company Number: DE-CELGENEUS-062-50794-12053198

PATIENT
  Age: 75 Year
  Sex: Female
  Weight: 53 kg

DRUGS (11)
  1. FILGRASTIM [Concomitant]
     Dosage: 6 TRANSFUSIONS
     Route: 065
     Dates: start: 20111109, end: 20111113
  2. EXJADE [Concomitant]
     Route: 065
     Dates: start: 20061001
  3. PLATELETS [Concomitant]
     Dosage: 6 TRANSFUSIONS
     Route: 065
     Dates: start: 20111025
  4. PLATELETS [Concomitant]
     Dosage: 4 TRANSFUSION
     Route: 065
     Dates: start: 20111028
  5. VIDAZA [Suspect]
     Dosage: 75 MILLIGRAM/SQ. METER
     Route: 065
     Dates: start: 20111017, end: 20111025
  6. RED BLOOD CELLS [Concomitant]
     Dosage: 4 TRANSFUSION
     Route: 065
     Dates: start: 20111028
  7. FILGRASTIM [Concomitant]
     Dosage: 4 TRANSFUSION
     Route: 065
     Dates: start: 20111028
  8. RED BLOOD CELLS [Concomitant]
     Dosage: 4 TRANSFUSIONS
     Route: 065
  9. VIDAZA [Suspect]
  10. VIDAZA [Suspect]
  11. EXJADE [Concomitant]
     Dosage: 4 TRANSFUSION
     Route: 065
     Dates: start: 20111028

REACTIONS (14)
  - CONSTIPATION [None]
  - HEADACHE [None]
  - BLOOD BILIRUBIN [None]
  - NAUSEA [None]
  - DEATH [None]
  - DISEASE PROGRESSION [None]
  - WHITE BLOOD CELL COUNT [None]
  - ALANINE AMINOTRANSFERASE ABNORMAL [None]
  - HAEMOGLOBIN [None]
  - ASPARTATE AMINOTRANSFERASE ABNORMAL [None]
  - BLOOD ALKALINE PHOSPHATASE [None]
  - PLATELET COUNT ABNORMAL [None]
  - GRANULOCYTE COUNT [None]
  - FATIGUE [None]
